FAERS Safety Report 4913098-9 (Version None)
Quarter: 2006Q1

REPORT INFORMATION
  Report Type: 
  Country: None (occurrence: None)
  Receive Date: 20060210
  Receipt Date: 20060125
  Transmission Date: 20060701
  Serious: Yes (Congenital Anomaly)
  Sender: FDA-Public Use
  Company Number: 8014770

PATIENT
  Weight: 3.21 kg

DRUGS (4)
  1. LEVETIRACETAM [Suspect]
     Indication: EPILEPSY
     Dosage: TRP
     Route: 064
  2. CARBAMAZEPINE [Suspect]
     Dosage: TRP
     Route: 064
  3. TOPIRAMATE [Suspect]
     Dosage: TRP
     Route: 064
  4. CLOBAZAM [Suspect]
     Dosage: TRP
     Route: 064

REACTIONS (3)
  - DRUG EXPOSURE DURING PREGNANCY [None]
  - HIP DYSPLASIA [None]
  - VENTOUSE EXTRACTION [None]
